FAERS Safety Report 5452769-5 (Version None)
Quarter: 2007Q3

REPORT INFORMATION
  Report Type: 
  Country: None (occurrence: None)
  Receive Date: 20070914
  Receipt Date: 20070904
  Transmission Date: 20080115
  Serious: Yes (Death, Hospitalization)
  Sender: FDA-Public Use
  Company Number: TW-ROCHE-515361

PATIENT

DRUGS (2)
  1. PEGASYS [Suspect]
     Indication: HEPATITIS C
     Route: 065
     Dates: end: 20070801
  2. ROBATROL [Suspect]
     Indication: HEPATITIS C
     Route: 065
     Dates: end: 20070801

REACTIONS (2)
  - DEATH [None]
  - DEPRESSION [None]
